FAERS Safety Report 8095089-5 (Version None)
Quarter: 2012Q1

REPORT INFORMATION
  Report Type: 
  Country: None (occurrence: None)
  Receive Date: 20120125
  Receipt Date: 20120111
  Transmission Date: 20120608
  Serious: Yes (Other)
  Sender: FDA-Public Use
  Company Number: 7104975

PATIENT
  Age: 32 Year
  Sex: Female

DRUGS (1)
  1. LEVOTHYROXINE SODIUM [Suspect]
     Indication: AUTOIMMUNE THYROIDITIS
     Dosage: 1 DF (1 DF, 1 IN 1 D)
     Route: 048
     Dates: start: 20110413, end: 20120105

REACTIONS (7)
  - PRODUCT SUBSTITUTION ISSUE [None]
  - HEADACHE [None]
  - EXOPHTHALMOS [None]
  - DRY EYE [None]
  - BREAST FEEDING [None]
  - DRUG HYPERSENSITIVITY [None]
  - REACTION TO DRUG EXCIPIENTS [None]
